FAERS Safety Report 15498191 (Version 2)
Quarter: 2018Q4

REPORT INFORMATION
  Report Type: Report from Study
  Country: US (occurrence: US)
  Receive Date: 20181015
  Receipt Date: 20181030
  Transmission Date: 20190205
  Serious: Yes (Other)
  Sender: FDA-Public Use
  Company Number: US-CONCORDIA PHARMACEUTICALS INC.-GSH201810-003555

PATIENT
  Age: 14 Year
  Sex: Female

DRUGS (2)
  1. ZONISAMIDE. [Suspect]
     Active Substance: ZONISAMIDE
     Indication: SEIZURE
     Dosage: REDUCED DOSE
  2. ZONISAMIDE. [Suspect]
     Active Substance: ZONISAMIDE
     Dosage: DOSE INCREASED

REACTIONS (3)
  - Condition aggravated [Unknown]
  - Seizure [Unknown]
  - Therapeutic response decreased [Unknown]
